FAERS Safety Report 8349189-2 (Version None)
Quarter: 2012Q2

REPORT INFORMATION
  Report Type: 
  Country: None (occurrence: None)
  Receive Date: 20120510
  Receipt Date: 20120430
  Transmission Date: 20120825
  Serious: Yes (Other)
  Sender: FDA-Public Use
  Company Number: BR-BRISTOL-MYERS SQUIBB COMPANY-16569436

PATIENT
  Sex: Female

DRUGS (2)
  1. IRBESARTAN AND HYDROCHLOROTHIAZIDE [Suspect]
     Dosage: APROZIDE 300/12.5 UNS TABLET
  2. INSULIN [Concomitant]

REACTIONS (1)
  - GLAUCOMA [None]
